FAERS Safety Report 7636060-4 (Version None)
Quarter: 2011Q3

REPORT INFORMATION
  Report Type: 
  Country: None (occurrence: None)
  Receive Date: 20110726
  Receipt Date: 20110720
  Transmission Date: 20111222
  Serious: Yes (Life-Threatening, Other)
  Sender: FDA-Public Use
  Company Number: FR-PFIZER INC-2011164161

PATIENT
  Age: 7 Year
  Sex: Male

DRUGS (3)
  1. ONCOVIN [Suspect]
     Indication: LYMPHOCYTIC LEUKAEMIA
     Dosage: UNK
     Route: 042
     Dates: start: 20100401, end: 20100823
  2. DOXORUBICIN HCL [Suspect]
     Indication: LYMPHOCYTIC LEUKAEMIA
     Dosage: UNK
     Route: 042
     Dates: start: 20100401, end: 20100823
  3. KIDROLASE [Suspect]
     Indication: LYMPHOCYTIC LEUKAEMIA
     Dosage: 10000 UNK, UNK
     Route: 042
     Dates: start: 20100401, end: 20100820

REACTIONS (4)
  - APLASIA [None]
  - POSTERIOR REVERSIBLE ENCEPHALOPATHY SYNDROME [None]
  - CYTOLYTIC HEPATITIS [None]
  - HISTIOCYTOSIS HAEMATOPHAGIC [None]
